FAERS Safety Report 10349512 (Version 1)
Quarter: 2014Q3

REPORT INFORMATION
  Report Type: Other
  Country: GB (occurrence: GB)
  Receive Date: 20140730
  Receipt Date: 20140730
  Transmission Date: 20150326
  Serious: Yes (Other)
  Sender: FDA-Public Use
  Company Number: GB-GLENMARK GENERICS INC.-2014GMK010300

PATIENT
  Age: 58 Year
  Sex: Female
  Weight: 79.37 kg

DRUGS (5)
  1. BUPRENORPHINE [Concomitant]
     Active Substance: BUPRENORPHINE
     Indication: PRODUCT USED FOR UNKNOWN INDICATION
     Dosage: 35 MG, UNK
  2. NORETHISTERONE ACETATE [Concomitant]
     Active Substance: NORETHINDRONE ACETATE
     Indication: PRODUCT USED FOR UNKNOWN INDICATION
     Dosage: 500 ?G, UNK
  3. TRAMADOL HYDROCHLORIDE. [Concomitant]
     Active Substance: TRAMADOL HYDROCHLORIDE
     Indication: PRODUCT USED FOR UNKNOWN INDICATION
     Dosage: 50 MG, UNK
  4. GABAPENTIN. [Suspect]
     Active Substance: GABAPENTIN
     Indication: PAIN
     Dosage: 100 MG, TID
     Route: 048
     Dates: start: 20140407, end: 20140409
  5. ESTRADIOL. [Concomitant]
     Active Substance: ESTRADIOL
     Indication: PRODUCT USED FOR UNKNOWN INDICATION
     Dosage: 1 MG, UNK

REACTIONS (10)
  - Migraine [Recovered/Resolved with Sequelae]
  - Nausea [Recovered/Resolved]
  - Nightmare [Recovered/Resolved with Sequelae]
  - Diarrhoea [Recovered/Resolved]
  - Tinnitus [Recovered/Resolved with Sequelae]
  - Influenza like illness [Recovered/Resolved]
  - Sleep disorder [Recovered/Resolved with Sequelae]
  - Pyrexia [Recovered/Resolved]
  - Rash [Recovered/Resolved]
  - Vomiting [Recovered/Resolved]

NARRATIVE: CASE EVENT DATE: 20140408
